FAERS Safety Report 14910374 (Version 1)
Quarter: 2018Q2

REPORT INFORMATION
  Report Type: Spontaneous
  Country: US (occurrence: US)
  Receive Date: 20180430
  Receipt Date: 20180430
  Transmission Date: 20180711
  Serious: No
  Sender: FDA-Public Use
  Company Number: None

PATIENT
  Sex: Female

DRUGS (1)
  1. HYDREA [Suspect]
     Active Substance: HYDROXYUREA

REACTIONS (3)
  - Blood pressure increased [None]
  - Fatigue [None]
  - Drug intolerance [None]
